FAERS Safety Report 9217871 (Version 1)
Quarter: 2013Q2

REPORT INFORMATION
  Report Type: Spontaneous
  Country: US (occurrence: US)
  Receive Date: 20130408
  Receipt Date: 20130408
  Transmission Date: 20140414
  Serious: Yes (Hospitalization, Other)
  Sender: FDA-Public Use
  Company Number: US-BAXTER-2013BAX011472

PATIENT
  Age: 90 Year
  Sex: Female

DRUGS (1)
  1. DIANEAL LOW CALCIUM [Suspect]
     Indication: PERITONEAL DIALYSIS
     Route: 033
     Dates: end: 20130313

REACTIONS (3)
  - Wound infection bacterial [Recovering/Resolving]
  - Bacterial test positive [Recovering/Resolving]
  - Catheter site infection [Recovering/Resolving]
